FAERS Safety Report 7020792-5 (Version None)
Quarter: 2010Q3

REPORT INFORMATION
  Report Type: 
  Country: None (occurrence: None)
  Receive Date: 20100929
  Receipt Date: 20100921
  Transmission Date: 20110219
  Serious: Yes (Other)
  Sender: FDA-Public Use
  Company Number: CN-PFIZER INC-2010119021

PATIENT

DRUGS (1)
  1. SULPERAZON [Suspect]
     Route: 041

REACTIONS (2)
  - COAGULATION TIME PROLONGED [None]
  - PROTHROMBIN TIME PROLONGED [None]
